FAERS Safety Report 25213895 (Version 3)
Quarter: 2025Q4

REPORT INFORMATION
  Report Type: Report from Study
  Country: IL (occurrence: IL)
  Receive Date: 20250418
  Receipt Date: 20251224
  Transmission Date: 20260118
  Serious: Yes (Hospitalization)
  Sender: TAKEDA
  Company Number: IL-TAKEDA-2024TUS013821

PATIENT
  Age: 43 Year
  Sex: Female

DRUGS (4)
  1. VELAGLUCERASE ALFA [Suspect]
     Active Substance: VELAGLUCERASE ALFA
     Indication: Gaucher^s disease
     Dosage: 6 DOSAGE FORM, Q4WEEKS
     Dates: start: 20101118
  2. VELAGLUCERASE ALFA [Suspect]
     Active Substance: VELAGLUCERASE ALFA
     Dosage: UNK
  3. VELAGLUCERASE ALFA [Suspect]
     Active Substance: VELAGLUCERASE ALFA
     Dosage: UNK UNK, Q2WEEKS
  4. VELAGLUCERASE ALFA [Suspect]
     Active Substance: VELAGLUCERASE ALFA
     Dosage: UNK, Q2WEEKS

REACTIONS (5)
  - Intervertebral disc displacement [Not Recovered/Not Resolved]
  - Pyrexia [Not Recovered/Not Resolved]
  - Product availability issue [Unknown]
  - Incorrect dose administered [Unknown]
  - Toothache [Not Recovered/Not Resolved]

NARRATIVE: CASE EVENT DATE: 20240211
